FAERS Safety Report 9528593 (Version 1)
Quarter: 2013Q1

REPORT INFORMATION
  Report Type: Spontaneous
  Country: US (occurrence: None)
  Receive Date: 20130314
  Receipt Date: 20130314
  Transmission Date: 20140127
  Serious: No
  Sender: FDA-Public Use
  Company Number: 1211USA011385

PATIENT
  Age: 39 Year
  Sex: Male

DRUGS (4)
  1. VICTRELIS ( BOCEPREVIR) CAPSULE [Suspect]
     Indication: CHRONIC HEPATITIS C
     Route: 048
     Dates: start: 20121101
  2. PRILOSEC ( OMEPRAZOLE) CAPSULE [Concomitant]
  3. PROPRANOLOL HYDROCHLORIDE ( PROPRANOLOL HYDROCHLORIDE) [Concomitant]
  4. TRAMADOL HYDROCHLORIDE ( TRAMADOL HYDROCHLORIDE) [Concomitant]

REACTIONS (2)
  - Regurgitation [None]
  - Pharyngitis [None]
